FAERS Safety Report 10508005 (Version 1)
Quarter: 2014Q4

REPORT INFORMATION
  Report Type: Spontaneous
  Country: DE (occurrence: DE)
  Receive Date: 20141009
  Receipt Date: 20141009
  Transmission Date: 20150528
  Serious: Yes (Hospitalization, Other)
  Sender: FDA-Public Use
  Company Number: DE-JNJFOC-20140925833

PATIENT
  Age: 1 Day
  Sex: Female
  Weight: 3.76 kg

DRUGS (4)
  1. VENLAFAXINE [Suspect]
     Active Substance: VENLAFAXINE HYDROCHLORIDE
     Indication: DEPRESSION
     Dosage: DOSE: 250 MG PER DAY
     Route: 064
     Dates: start: 20121123
  2. INSULIN [Concomitant]
     Active Substance: INSULIN NOS
     Indication: GESTATIONAL DIABETES
     Route: 064
     Dates: start: 20130615, end: 20130801
  3. VENLAFAXINE [Suspect]
     Active Substance: VENLAFAXINE HYDROCHLORIDE
     Indication: DEPRESSION
     Dosage: DOSE: 225 MG PER DAY
     Route: 064
     Dates: end: 20130801
  4. RISPERIDONE. [Suspect]
     Active Substance: RISPERIDONE
     Indication: DEPRESSION
     Route: 064
     Dates: start: 20121123, end: 20130504

REACTIONS (9)
  - Drug withdrawal syndrome neonatal [Recovered/Resolved]
  - Generalised tonic-clonic seizure [Unknown]
  - Premature baby [Not Recovered/Not Resolved]
  - Agitation [Unknown]
  - Hyperbilirubinaemia neonatal [Recovered/Resolved]
  - Neonatal tachycardia [Unknown]
  - Neonatal tachypnoea [Recovered/Resolved]
  - Large for dates baby [Unknown]
  - Foetal exposure during pregnancy [Not Recovered/Not Resolved]

NARRATIVE: CASE EVENT DATE: 20130801
